FAERS Safety Report 7685631-8 (Version None)
Quarter: 2011Q3

REPORT INFORMATION
  Report Type: 
  Country: None (occurrence: None)
  Receive Date: 20110816
  Receipt Date: 20110805
  Transmission Date: 20111222
  Serious: Yes (Hospitalization)
  Sender: FDA-Public Use
  Company Number: PHHY2011FR71434

PATIENT
  Sex: Female

DRUGS (3)
  1. CYCLOPHOSPHAMIDE [Suspect]
     Indication: ADENOCARCINOMA
     Route: 042
     Dates: start: 20110225, end: 20110610
  2. FLUOROURACIL [Suspect]
     Indication: ADENOCARCINOMA
     Route: 042
     Dates: start: 20110225, end: 20110610
  3. EPIRUBICIN [Suspect]
     Indication: ADENOCARCINOMA
     Route: 042
     Dates: start: 20110225, end: 20110610

REACTIONS (7)
  - DEPRESSION [None]
  - ABNORMAL BEHAVIOUR [None]
  - PSYCHOMOTOR RETARDATION [None]
  - ANXIETY [None]
  - EATING DISORDER [None]
  - DEREALISATION [None]
  - FEELING ABNORMAL [None]
